FAERS Safety Report 11941547 (Version 2)
Quarter: 2016Q3

REPORT INFORMATION
  Report Type: Report from Study
  Country: US (occurrence: US)
  Receive Date: 20160122
  Receipt Date: 20160809
  Transmission Date: 20161109
  Serious: Yes (Disabling, Other)
  Sender: FDA-Public Use
  Company Number: US-SA-2015SA216634

PATIENT
  Age: 33 Year
  Sex: Female

DRUGS (4)
  1. VALTREX [Concomitant]
     Active Substance: VALACYCLOVIR HYDROCHLORIDE
  2. PREDNISONE. [Concomitant]
     Active Substance: PREDNISONE
     Dates: end: 2016
  3. LEMTRADA [Suspect]
     Active Substance: ALEMTUZUMAB
     Indication: MULTIPLE SCLEROSIS
     Route: 041
     Dates: start: 20151214, end: 20151218
  4. VALTREX [Suspect]
     Active Substance: VALACYCLOVIR HYDROCHLORIDE
     Route: 065

REACTIONS (45)
  - Eye infection bacterial [Recovered/Resolved]
  - Hypertension [Unknown]
  - Abdominal rigidity [Unknown]
  - Flushing [Recovering/Resolving]
  - Diarrhoea [Recovering/Resolving]
  - Chest discomfort [Not Recovered/Not Resolved]
  - Condition aggravated [Recovering/Resolving]
  - Eye swelling [Recovered/Resolved]
  - Eye discharge [Recovered/Resolved]
  - Chest pain [Not Recovered/Not Resolved]
  - Fatigue [Not Recovered/Not Resolved]
  - Urinary tract infection [Recovering/Resolving]
  - Ocular hyperaemia [Recovered/Resolved]
  - Pericarditis infective [Recovered/Resolved]
  - Alopecia [Not Recovered/Not Resolved]
  - Rash pruritic [Recovering/Resolving]
  - Dysuria [Recovering/Resolving]
  - Lower respiratory tract infection [Unknown]
  - Eye irritation [Recovered/Resolved]
  - Eye infection [Recovered/Resolved]
  - Nervousness [Not Recovered/Not Resolved]
  - Feeling cold [Not Recovered/Not Resolved]
  - Somnolence [Unknown]
  - Feeling abnormal [Not Recovered/Not Resolved]
  - Bronchospasm [Recovered/Resolved]
  - Herpes zoster [Recovered/Resolved]
  - Paranasal sinus discomfort [Not Recovered/Not Resolved]
  - Secretion discharge [Not Recovered/Not Resolved]
  - Viral infection [Recovered/Resolved]
  - Constipation [Unknown]
  - Abdominal pain [Unknown]
  - Rash erythematous [Recovered/Resolved]
  - Cough [Not Recovered/Not Resolved]
  - Sinusitis [Recovered/Resolved]
  - Candida infection [Recovered/Resolved]
  - Chest pain [Recovered/Resolved]
  - Asthenia [Not Recovered/Not Resolved]
  - Syncope [Recovered/Resolved]
  - Upper respiratory tract infection [Recovered/Resolved]
  - Nausea [Recovering/Resolving]
  - Gastrointestinal sounds abnormal [Unknown]
  - Vomiting [Recovering/Resolving]
  - Arthralgia [Recovering/Resolving]
  - Nasopharyngitis [Recovered/Resolved]
  - Stress [Unknown]

NARRATIVE: CASE EVENT DATE: 2015
